FAERS Safety Report 9147970 (Version 1)
Quarter: 2013Q1

REPORT INFORMATION
  Report Type: Spontaneous
  Country: CH (occurrence: CH)
  Receive Date: 20130304
  Receipt Date: 20130304
  Transmission Date: 20140127
  Serious: Yes (Other)
  Sender: FDA-Public Use
  Company Number: CH-CTI_01562_2013

PATIENT
  Age: 0 None
  Sex: Male
  Weight: 1.75 kg

DRUGS (3)
  1. MORPHINE [Suspect]
     Indication: SEDATIVE THERAPY
     Dosage: [DAILY]
     Route: 040
     Dates: start: 20130112, end: 20130112
  2. MIDAZOLAM [Suspect]
     Indication: SEDATIVE THERAPY
     Dosage: [DAILY]
     Route: 040
     Dates: start: 20130112, end: 20130113
  3. CUROSURF [Suspect]
     Indication: NEONATAL RESPIRATORY DISTRESS SYNDROME
     Dosage: [DAILY]
     Route: 039
     Dates: start: 20130112, end: 20130113

REACTIONS (4)
  - Acute respiratory failure [Recovered/Resolved]
  - Bradycardia [Recovered/Resolved]
  - Pulmonary hypertension [Unknown]
  - Oxygen saturation decreased [Recovered/Resolved]
